FAERS Safety Report 9333176 (Version 2)
Quarter: 2013Q2

REPORT INFORMATION
  Report Type: Spontaneous
  Country: US (occurrence: None)
  Receive Date: 20130604
  Receipt Date: 20130618
  Transmission Date: 20140414
  Serious: Yes (Other)
  Sender: FDA-Public Use
  Company Number: 2013P1006522

PATIENT
  Age: 20 Year
  Sex: Female

DRUGS (4)
  1. MYORISAN [Suspect]
     Indication: ACNE CYSTIC
     Route: 048
     Dates: start: 20130424, end: 20130523
  2. MYORISAN [Suspect]
     Route: 048
     Dates: start: 20130225, end: 20130523
  3. BIRTH CONTROL (UNSPECIFIED) [Concomitant]
  4. MULTIVITAMIN [Concomitant]

REACTIONS (1)
  - Depressed mood [None]
